FAERS Safety Report 7076924-6 (Version None)
Quarter: 2010Q4

REPORT INFORMATION
  Report Type: 
  Country: None (occurrence: None)
  Receive Date: 20101029
  Receipt Date: 20101029
  Transmission Date: 20110411
  Serious: Yes (Disabling)
  Sender: FDA-Public Use
  Company Number: None

PATIENT
  Age: 25 Year
  Sex: Female
  Weight: 72.5755 kg

DRUGS (1)
  1. ORLISTAT [Suspect]
     Indication: WEIGHT CONTROL
     Dosage: 120 MG THREE TIMES DAILY PO
     Route: 048
     Dates: start: 20100411, end: 20101021

REACTIONS (5)
  - CANDIDIASIS [None]
  - CONJUNCTIVITIS [None]
  - FUNGAL INFECTION [None]
  - RASH [None]
  - TINEA PEDIS [None]
